FAERS Safety Report 9170283 (Version 1)
Quarter: 2013Q1

REPORT INFORMATION
  Report Type: Spontaneous
  Country: US (occurrence: None)
  Receive Date: 20130315
  Receipt Date: 20130315
  Transmission Date: 20140127
  Serious: Yes (Hospitalization)
  Sender: FDA-Public Use
  Company Number: None

PATIENT
  Age: 87 Year
  Sex: Female
  Weight: 67 kg

DRUGS (11)
  1. DIGOXIN [Suspect]
     Route: 048
  2. ASPIRIN [Concomitant]
  3. DOCUSATE SODIUM [Concomitant]
  4. FENOFIBRATE [Concomitant]
  5. FERROUS SULFATE [Concomitant]
  6. OLMESARTAN [Concomitant]
  7. OMEPRAZOLE [Concomitant]
  8. PIOGLITAZONE [Concomitant]
  9. TOLTERODINE LA [Concomitant]
  10. WARFARIN [Concomitant]
  11. ERGOCALCIFEROL [Concomitant]

REACTIONS (5)
  - Toxicity to various agents [None]
  - Anaemia [None]
  - Colon cancer [None]
  - Bradycardia [None]
  - Embolic stroke [None]
